FAERS Safety Report 18975731 (Version 2)
Quarter: 2021Q1

REPORT INFORMATION
  Report Type: Spontaneous
  Country: PT (occurrence: PT)
  Receive Date: 20210305
  Receipt Date: 20210311
  Transmission Date: 20210420
  Serious: Yes (Hospitalization, Other)
  Sender: FDA-Public Use
  Company Number: PT-TEVA-2021-PT-1885358

PATIENT
  Age: 69 Year
  Sex: Male

DRUGS (4)
  1. PERINDOPRIL WITH AMLODIPINE [Concomitant]
     Dosage: 1 DOSAGE FOM IS COMPOSED 5MG+ 10 MG
     Route: 048
  2. SALAZOPIRIN [Concomitant]
     Dosage: 1000 MILLIGRAM DAILY; 1 DOSAGE FOM IS COMPOSED 5MG+ 10 MG
     Route: 048
  3. INSULINA HUMALOG MIX [Concomitant]
     Dosage: 36 IU (INTERNATIONAL UNIT) DAILY; 1 DOSAGE FOM IS COMPOSED 5MG+ 10 MG
     Route: 042
  4. SIMVASTATIN. [Suspect]
     Active Substance: SIMVASTATIN
     Dosage: SUSPENDED 3 MONTHS BEFORES HOSPITAL ADMISSION
     Route: 048

REACTIONS (1)
  - Colitis microscopic [Recovered/Resolved]
